FAERS Safety Report 9626459 (Version 1)
Quarter: 2013Q4

REPORT INFORMATION
  Report Type: Spontaneous
  Country: US (occurrence: None)
  Receive Date: 20131015
  Receipt Date: 20131015
  Transmission Date: 20140711
  Serious: Yes (Life-Threatening)
  Sender: FDA-Public Use
  Company Number: None

PATIENT
  Age: 45 Year
  Sex: Female
  Weight: 63.5 kg

DRUGS (2)
  1. ASPIRIN [Suspect]
     Indication: CORONARY ARTERY BYPASS
     Route: 048
     Dates: start: 20130306, end: 20130524
  2. ASPIRIN [Suspect]
     Route: 048
     Dates: start: 20130306, end: 20130524

REACTIONS (5)
  - Abdominal pain [None]
  - Faeces discoloured [None]
  - Nausea [None]
  - Dysgeusia [None]
  - General physical health deterioration [None]
